FAERS Safety Report 23999666 (Version 2)
Quarter: 2024Q3

REPORT INFORMATION
  Report Type: Spontaneous
  Country: US (occurrence: US)
  Receive Date: 20240621
  Receipt Date: 20240904
  Transmission Date: 20241017
  Serious: Yes (Death, Hospitalization, Other)
  Sender: CATALYST PHARMA
  Company Number: US-CATALYST PHARMACEUTICALS, INC-US-CATA-24-00551

PATIENT
  Sex: Female
  Weight: 57.601 kg

DRUGS (17)
  1. FIRDAPSE [Suspect]
     Active Substance: AMIFAMPRIDINE PHOSPHATE
     Indication: Myasthenic syndrome
     Dosage: 30 MG DAILY (1 TABLET 3 X DAY)
     Route: 048
     Dates: start: 20191213
  2. FIRDAPSE [Suspect]
     Active Substance: AMIFAMPRIDINE PHOSPHATE
     Dosage: 80 MG DAILY (2 TABLETS 4 X DAY)
     Route: 048
     Dates: start: 20200220
  3. CYANOCOBALAMIN [Concomitant]
     Active Substance: CYANOCOBALAMIN
     Indication: Product used for unknown indication
     Dosage: EVERY TWO WEEKS
     Route: 065
  4. CYANOCOBALAMIN [Concomitant]
     Active Substance: CYANOCOBALAMIN
     Dosage: 1000MCG
     Route: 065
  5. GAMMAGARD [Concomitant]
     Active Substance: HUMAN IMMUNOGLOBULIN G
     Indication: Product used for unknown indication
     Dosage: EVERY THREE WEEKS
     Route: 042
  6. HUMIRA [Concomitant]
     Active Substance: ADALIMUMAB
     Indication: Product used for unknown indication
     Dosage: EVERY TWO WEEKS
     Route: 065
  7. HUMIRA [Concomitant]
     Active Substance: ADALIMUMAB
     Dosage: 20MG
     Route: 065
  8. MAGNESIUM CITRATE [Concomitant]
     Active Substance: MAGNESIUM CITRATE
     Indication: Product used for unknown indication
     Dosage: 100 MG DAILY
     Route: 065
  9. MESTINON [Concomitant]
     Active Substance: PYRIDOSTIGMINE BROMIDE
     Indication: Product used for unknown indication
     Dosage: 30 MG FIVE TIMES DAILY
     Route: 065
  10. POTASSIUM ER [Concomitant]
     Indication: Product used for unknown indication
     Dosage: 20 MEQ DAILY
     Route: 065
  11. PROZAC [Concomitant]
     Active Substance: FLUOXETINE HYDROCHLORIDE
     Indication: Product used for unknown indication
     Dosage: 40 MG TWICE DAILY
     Route: 065
  12. SYNTHROID [Concomitant]
     Active Substance: LEVOTHYROXINE SODIUM
     Indication: Product used for unknown indication
     Dosage: 200 MCG DAILY
     Route: 065
  13. VITAMIN D3 [Concomitant]
     Active Substance: CHOLECALCIFEROL
     Indication: Product used for unknown indication
     Dosage: DAILY
     Route: 065
  14. VITAMIN D3 [Concomitant]
     Active Substance: CHOLECALCIFEROL
     Dosage: 250MCG
     Route: 065
  15. ZOFRAN [Concomitant]
     Active Substance: ONDANSETRON HYDROCHLORIDE
     Indication: Product used for unknown indication
     Dosage: 8 MG AS NEEDED
     Route: 065
  16. WELLBUTRIN SR [Concomitant]
     Active Substance: BUPROPION HYDROCHLORIDE
     Indication: Product used for unknown indication
     Dosage: 200 MG TWICE DAILY
     Route: 065
  17. VICODIN [Concomitant]
     Active Substance: ACETAMINOPHEN\HYDROCODONE BITARTRATE
     Indication: Product used for unknown indication
     Dosage: 10/300MG
     Route: 065

REACTIONS (2)
  - Pneumonia [Fatal]
  - Cardiac arrest [Not Recovered/Not Resolved]
